FAERS Safety Report 8207973-X (Version None)
Quarter: 2012Q1

REPORT INFORMATION
  Report Type: 
  Country: None (occurrence: None)
  Receive Date: 20120314
  Receipt Date: 20120312
  Transmission Date: 20120608
  Serious: Yes (Hospitalization, Other)
  Sender: FDA-Public Use
  Company Number: JP-B.I. PHARMACEUTICALS,INC./RIDGEFIELD-2012-BP-04812NB

PATIENT
  Age: 83 Year
  Sex: Male

DRUGS (4)
  1. ASPIRIN [Suspect]
     Route: 065
  2. AVAPRO [Concomitant]
     Route: 065
  3. BEPRICOR [Concomitant]
     Route: 065
  4. PRADAXA [Suspect]
     Dosage: 220 MG
     Route: 048
     Dates: start: 20110319, end: 20120222

REACTIONS (2)
  - DIVERTICULUM INTESTINAL HAEMORRHAGIC [None]
  - SHOCK [None]
